FAERS Safety Report 17877774 (Version 2)
Quarter: 2020Q2

REPORT INFORMATION
  Report Type: Report from Study
  Country: None (occurrence: CA)
  Receive Date: 20200609
  Receipt Date: 20200614
  Transmission Date: 20200714
  Serious: Yes (Hospitalization)
  Sender: FDA-Public Use
  Company Number: CA-ABBVIE-20K-028-3435610-00

PATIENT
  Sex: Female

DRUGS (1)
  1. HUMIRA [Suspect]
     Active Substance: ADALIMUMAB
     Indication: CROHN^S DISEASE
     Route: 058
     Dates: start: 20170106, end: 20200515

REACTIONS (2)
  - Drug ineffective [Not Recovered/Not Resolved]
  - Intestinal mass [Not Recovered/Not Resolved]
